FAERS Safety Report 8771356 (Version 2)
Quarter: 2013Q1

REPORT INFORMATION
  Report Type: Spontaneous
  Country: US (occurrence: US)
  Receive Date: 20120905
  Receipt Date: 20130201
  Transmission Date: 20140127
  Serious: Yes (Other)
  Sender: FDA-Public Use
  Company Number: US-ASTRAZENECA-2012SE22399

PATIENT
  Age: 58 Year
  Sex: Female
  Weight: 51.7 kg

DRUGS (8)
  1. SEROQUEL XR [Suspect]
     Indication: BIPOLAR I DISORDER
     Route: 048
     Dates: start: 20091116
  2. BENAZEPRIL [Concomitant]
     Indication: HYPERTENSION
     Route: 048
  3. BUSPIRONE [Concomitant]
     Indication: ANXIETY
     Route: 048
  4. LEXAPRO [Concomitant]
     Indication: DEPRESSION
     Route: 048
     Dates: start: 20071121
  5. LEXAPRO [Concomitant]
     Indication: DEPRESSION
     Route: 048
  6. BUSPAR [Concomitant]
     Indication: ANXIETY
     Route: 048
  7. BUSPAR [Concomitant]
     Indication: ANXIETY
  8. TRAZADONE [Concomitant]

REACTIONS (8)
  - Agranulocytosis [Not Recovered/Not Resolved]
  - Red blood cell count decreased [Unknown]
  - Haematocrit decreased [Unknown]
  - Mean cell volume increased [Unknown]
  - Mean cell haemoglobin increased [Unknown]
  - Red cell distribution width increased [Unknown]
  - Blood triglycerides increased [Unknown]
  - Adverse event [Unknown]
